FAERS Safety Report 17100067 (Version 2)
Quarter: 2020Q1

REPORT INFORMATION
  Report Type: Spontaneous
  Country: US (occurrence: US)
  Receive Date: 20191202
  Receipt Date: 20200104
  Transmission Date: 20200409
  Serious: Yes (Other)
  Sender: FDA-Public Use
  Company Number: US-SERVIER-S19012580

PATIENT

DRUGS (5)
  1. ONCASPAR [Suspect]
     Active Substance: PEGASPARGASE
     Indication: ACUTE LYMPHOCYTIC LEUKAEMIA
     Dosage: 3450 IU, ONE DOSE
     Route: 042
     Dates: start: 20190616, end: 20190616
  2. TN UNSPECIFIED [HYDROCORTISONE BUTYRATE] [Concomitant]
     Active Substance: HYDROCORTISONE BUTYRATE
     Dosage: 100 MG
     Route: 042
     Dates: start: 20191015
  3. ONCASPAR [Suspect]
     Active Substance: PEGASPARGASE
     Dosage: 3460 IU, ONE DOSE
     Route: 042
     Dates: start: 20191015, end: 20191015
  4. TN UNSPECIFIED [METHOTREXATE SODIUM] [Concomitant]
     Active Substance: METHOTREXATE SODIUM
     Indication: ACUTE LYMPHOCYTIC LEUKAEMIA
     Dosage: 15 MG
     Route: 037
     Dates: start: 20191015
  5. TN UNSPECIFIED [HYDROCORTISONE BUTYRATE] [Concomitant]
     Active Substance: HYDROCORTISONE BUTYRATE
     Indication: ACUTE LYMPHOCYTIC LEUKAEMIA
     Dosage: 50 MG
     Route: 037
     Dates: start: 20191015

REACTIONS (1)
  - Hypersensitivity [Recovered/Resolved]

NARRATIVE: CASE EVENT DATE: 20191015
